FAERS Safety Report 12974620 (Version 1)
Quarter: 2016Q4

REPORT INFORMATION
  Report Type: Spontaneous
  Country: CA (occurrence: CA)
  Receive Date: 20161125
  Receipt Date: 20161125
  Transmission Date: 20170207
  Serious: Yes (Hospitalization)
  Sender: FDA-Public Use
  Company Number: CA-ASTRAZENECA-2016SF23074

PATIENT
  Age: 83 Year
  Sex: Female
  Weight: 72.1 kg

DRUGS (13)
  1. VICTOZA MULTIDOSE PEN-INJECTOR [Concomitant]
     Dosage: 30DOSES(0.6MG)-15DOSES(1.2MG)-10DOSES(1.8MG). 1/2/3
  2. MULTIVITAMINE(S) [Concomitant]
  3. BISOPROLOL [Concomitant]
     Active Substance: BISOPROLOL
  4. ELIQUIS FILM-COATED [Concomitant]
  5. METFORMIN [Concomitant]
     Active Substance: METFORMIN HYDROCHLORIDE
  6. VITAMIN B12 [Concomitant]
     Active Substance: CYANOCOBALAMIN
  7. VITAMIN E [Concomitant]
     Active Substance: .ALPHA.-TOCOPHEROL
  8. ATORVASTATIN CALCIUM. [Concomitant]
     Active Substance: ATORVASTATIN CALCIUM
  9. LEVOTHYROXINE. [Concomitant]
     Active Substance: LEVOTHYROXINE
  10. OXYBUTYNIN [Concomitant]
     Active Substance: OXYBUTYNIN
  11. RAMIPRIL. [Concomitant]
     Active Substance: RAMIPRIL
  12. VENLAFAXINE XR [Concomitant]
     Active Substance: VENLAFAXINE HYDROCHLORIDE
  13. FORXIGA [Suspect]
     Active Substance: DAPAGLIFLOZIN
     Indication: DIABETES MELLITUS INADEQUATE CONTROL
     Route: 048

REACTIONS (5)
  - Diarrhoea [Recovered/Resolved]
  - Atrial fibrillation [Recovered/Resolved]
  - Blood creatinine increased [Recovered/Resolved]
  - Malaise [Recovered/Resolved]
  - Hypophagia [Recovered/Resolved]
